FAERS Safety Report 4996236-1 (Version None)
Quarter: 2006Q2

REPORT INFORMATION
  Report Type: 
  Country: None (occurrence: None)
  Receive Date: 20060505
  Receipt Date: 20060426
  Transmission Date: 20061013
  Serious: Yes (Death)
  Sender: FDA-Public Use
  Company Number: RS005896-F

PATIENT
  Age: 69 Year
  Sex: Male
  Weight: 60 kg

DRUGS (14)
  1. RABEPRAZOLE SODIUM [Suspect]
     Dosage: ORAL
     Route: 048
     Dates: end: 20060217
  2. DEPAKENE [Suspect]
     Indication: AFFECTIVE DISORDER
     Dosage: 250 MG, ORAL
     Route: 048
     Dates: start: 20051129, end: 20060217
  3. AMITRIPTYLINE HCL [Suspect]
     Dosage: ORAL
     Route: 048
     Dates: start: 20060131, end: 20060217
  4. PREVISCAN (FLUINDIONE) [Suspect]
     Dosage: ORAL
     Dates: end: 20060217
  5. CORDARONE [Suspect]
     Dosage: ORAL
     Route: 048
     Dates: end: 20060217
  6. IDARAC [Concomitant]
     Dosage: ORAL
     Route: 048
     Dates: start: 20060131, end: 20060217
  7. ACETAMINOPHEN [Concomitant]
  8. CLONAZEPAM [Concomitant]
  9. ZOLPIDEM TARTRATE [Concomitant]
  10. NITRIDERM (GLYCERYL TRINITRATE) [Concomitant]
  11. LANTUS [Concomitant]
  12. ATARAX [Concomitant]
  13. SMECTA (SMECTITE) [Concomitant]
  14. ZAMADOL (TRAMADOL) [Concomitant]

REACTIONS (10)
  - ANOREXIA [None]
  - APHASIA [None]
  - CARDIAC DISORDER [None]
  - CEREBROVASCULAR ACCIDENT [None]
  - CONFUSIONAL STATE [None]
  - HEPATITIS FULMINANT [None]
  - INFLAMMATION [None]
  - INTERNATIONAL NORMALISED RATIO INCREASED [None]
  - LEUKOCYTOSIS [None]
  - RENAL FAILURE [None]
